FAERS Safety Report 10230400 (Version 1)
Quarter: 2014Q2

REPORT INFORMATION
  Report Type: Spontaneous
  Country: US (occurrence: US)
  Receive Date: 20140611
  Receipt Date: 20140611
  Transmission Date: 20141212
  Serious: Yes (Other)
  Sender: FDA-Public Use
  Company Number: US-INCYTE CORPORATION-2014IN000531

PATIENT
  Sex: Male
  Weight: 129.25 kg

DRUGS (5)
  1. JAKAFI [Suspect]
     Dosage: 15 MG, BID
     Route: 048
     Dates: start: 20131121
  2. DANAZOL [Concomitant]
  3. LISINOPRIL [Concomitant]
  4. ALLOPURINOL [Concomitant]
  5. BABY ASPIRIN [Concomitant]

REACTIONS (2)
  - Disease progression [Unknown]
  - Blood product transfusion dependent [Unknown]
